APPROVED DRUG PRODUCT: COLD CAPSULE IV
Active Ingredient: CHLORPHENIRAMINE MALEATE; PHENYLPROPANOLAMINE HYDROCHLORIDE
Strength: 12MG;75MG
Dosage Form/Route: CAPSULE, EXTENDED RELEASE;ORAL
Application: N018793 | Product #001
Applicant: DM GRAHAM LABORATORIES INC
Approved: Apr 25, 1985 | RLD: No | RS: No | Type: DISCN